FAERS Safety Report 10069925 (Version 2)
Quarter: 2014Q3

REPORT INFORMATION
  Report Type: Spontaneous
  Country: AU (occurrence: None)
  Receive Date: 20140408
  Receipt Date: 20140722
  Transmission Date: 20150326
  Serious: Yes (Other)
  Sender: FDA-Public Use
  Company Number: AUR-APL-2014-04173

PATIENT
  Age: 49 Year

DRUGS (4)
  1. BACLOFEN (BACLOFEN) [Concomitant]
     Active Substance: BACLOFEN
  2. AURO-QUETIAPINE 25 (QUETIAPINE) FILM-COATED TABLE, 25MG? [Suspect]
     Active Substance: QUETIAPINE
     Indication: PRODUCT USED FOR UNKNOWN INDICATION
  3. MORPHINE HCL [Suspect]
     Active Substance: MORPHINE HYDROCHLORIDE
     Indication: PRODUCT USED FOR UNKNOWN INDICATION
  4. TRAMADOL [Suspect]
     Active Substance: TRAMADOL
     Indication: PRODUCT USED FOR UNKNOWN INDICATION
     Route: 048
     Dates: start: 20111009, end: 20111010

REACTIONS (7)
  - Agitation [None]
  - Aggression [None]
  - Drug withdrawal syndrome [None]
  - Cerebrovascular accident [None]
  - Confusional state [None]
  - Convulsion [None]
  - Serotonin syndrome [None]

NARRATIVE: CASE EVENT DATE: 20111009
